FAERS Safety Report 9188850 (Version 2)
Quarter: 2013Q3

REPORT INFORMATION
  Report Type: Spontaneous
  Country: US (occurrence: US)
  Receive Date: 20130326
  Receipt Date: 20130830
  Transmission Date: 20140515
  Serious: Yes (Other)
  Sender: FDA-Public Use
  Company Number: US-PFIZER INC-2013093060

PATIENT
  Age: 38 Year
  Sex: Female
  Weight: 90.7 kg

DRUGS (7)
  1. CHANTIX [Suspect]
     Dosage: UNK
     Dates: start: 20070314, end: 20070725
  2. CHANTIX [Suspect]
     Dosage: STARTER PACK
     Dates: start: 20070514
  3. CHANTIX [Suspect]
     Dosage: 1 MG, UNK
     Route: 048
     Dates: start: 20070725
  4. CHANTIX [Suspect]
     Dosage: 1 MG, UNK
     Route: 048
     Dates: start: 20070729
  5. ZOLPIDEM [Concomitant]
     Dosage: 10 MG, UNK
     Route: 048
     Dates: start: 20070615
  6. CEPHALEXIN [Concomitant]
     Dosage: 500 MG, UNK
     Route: 048
     Dates: start: 20070615
  7. AMBIEN CR [Concomitant]
     Dosage: 12.5 MG, UNK
     Route: 048
     Dates: start: 20070623

REACTIONS (2)
  - Intentional overdose [Unknown]
  - Suicide attempt [Unknown]
